FAERS Safety Report 8006171-2 (Version None)
Quarter: 2011Q4

REPORT INFORMATION
  Report Type: 
  Country: None (occurrence: None)
  Receive Date: 20111226
  Receipt Date: 20111219
  Transmission Date: 20120403
  Serious: Yes (Disabling, Other)
  Sender: FDA-Public Use
  Company Number: US-BRISTOL-MYERS SQUIBB COMPANY-16189540

PATIENT
  Age: 74 Year
  Sex: Female

DRUGS (2)
  1. YERVOY [Suspect]
     Indication: METASTATIC MALIGNANT MELANOMA
     Dosage: INFUSION 2. STRENGTH:3MG/KG
     Route: 042
     Dates: start: 20110915, end: 20111007
  2. ATIVAN [Concomitant]

REACTIONS (5)
  - HEPATIC ENZYME INCREASED [None]
  - DERMATITIS [None]
  - NEOPLASM MALIGNANT [None]
  - URINARY TRACT INFECTION [None]
  - RASH [None]
